FAERS Safety Report 15180343 (Version 2)
Quarter: 2018Q3

REPORT INFORMATION
  Report Type: Spontaneous
  Country: US (occurrence: US)
  Receive Date: 20180723
  Receipt Date: 20180903
  Transmission Date: 20181010
  Serious: No
  Sender: FDA-Public Use
  Company Number: US-JNJFOC-20180713360

PATIENT
  Sex: Female
  Weight: 68.04 kg

DRUGS (3)
  1. KETOCONAZOLE. [Suspect]
     Active Substance: KETOCONAZOLE
     Indication: SCAB
     Route: 061
     Dates: start: 2018
  2. SERTRALINE [Concomitant]
     Active Substance: SERTRALINE HYDROCHLORIDE
     Route: 065
  3. CLOBETASOL [Concomitant]
     Active Substance: CLOBETASOL
     Route: 065

REACTIONS (2)
  - Product label issue [Unknown]
  - Drug dose omission [Unknown]

NARRATIVE: CASE EVENT DATE: 2018
